FAERS Safety Report 20614879 (Version 4)
Quarter: 2022Q4

REPORT INFORMATION
  Report Type: Other
  Country: DE (occurrence: None)
  Receive Date: 20220321
  Receipt Date: 20221209
  Transmission Date: 20230113
  Serious: Yes (Other)
  Sender: FDA-Public Use
  Company Number: DE-ROCHE-2534836

PATIENT
  Age: 53 Year
  Sex: Female

DRUGS (3)
  1. OCREVUS [Suspect]
     Active Substance: OCRELIZUMAB
     Indication: Multiple sclerosis
     Route: 042
     Dates: start: 20190515
  2. OCREVUS [Suspect]
     Active Substance: OCRELIZUMAB
     Route: 042
     Dates: start: 20201124
  3. MIRABEGRON [Suspect]
     Active Substance: MIRABEGRON
     Indication: Product used for unknown indication
     Route: 065
     Dates: end: 2021

REACTIONS (12)
  - Urinary retention [Recovering/Resolving]
  - Oropharyngeal pain [Recovered/Resolved]
  - Uterine disorder [Not Recovered/Not Resolved]
  - Fatigue [Recovered/Resolved]
  - Cystitis [Recovered/Resolved]
  - COVID-19 [Not Recovered/Not Resolved]
  - Palpitations [Recovering/Resolving]
  - Pain in extremity [Unknown]
  - Fatigue [Recovered/Resolved]
  - Thyroid disorder [Not Recovered/Not Resolved]
  - Inflammation [Not Recovered/Not Resolved]
  - Conjunctivitis [Recovering/Resolving]

NARRATIVE: CASE EVENT DATE: 20201101
